FAERS Safety Report 18252691 (Version 3)
Quarter: 2020Q4

REPORT INFORMATION
  Report Type: Spontaneous
  Country: HR (occurrence: HR)
  Receive Date: 20200910
  Receipt Date: 20201028
  Transmission Date: 20210113
  Serious: Yes (Other)
  Sender: FDA-Public Use
  Company Number: HR-VIFOR (INTERNATIONAL) INC.-VIT-2019-00001

PATIENT
  Age: 58 Year
  Sex: Male
  Weight: 72.5 kg

DRUGS (9)
  1. EBRANTIL [Concomitant]
     Active Substance: URAPIDIL
  2. ARES [Concomitant]
     Active Substance: RABEPRAZOLE SODIUM
  3. VELPHORO [Suspect]
     Active Substance: SUCROFERRIC OXYHYDROXIDE
     Indication: HYPERPHOSPHATAEMIA
     Route: 048
     Dates: start: 20180811, end: 20180817
  4. TRIPLIXAM [Concomitant]
     Active Substance: AMLODIPINE BESYLATE\INDAPAMIDE\PERINDOPRIL ARGININE
     Dosage: 10/2, 5/10 MG
  5. NEBILET [Concomitant]
     Active Substance: NEBIVOLOL
  6. SELDIAR [Concomitant]
  7. COLOSPA [Concomitant]
     Active Substance: MEBEVERINE HYDROCHLORIDE
  8. TOMID [Concomitant]
  9. FOLACIN [Concomitant]

REACTIONS (3)
  - Condition aggravated [Recovered/Resolved]
  - Abdominal pain [Recovered/Resolved]
  - Diarrhoea [Recovered/Resolved]

NARRATIVE: CASE EVENT DATE: 20180811
